FAERS Safety Report 6231917-3 (Version None)
Quarter: 2009Q2

REPORT INFORMATION
  Report Type: 
  Country: None (occurrence: None)
  Receive Date: 20090616
  Receipt Date: 20090608
  Transmission Date: 20091009
  Serious: Yes (Hospitalization)
  Sender: FDA-Public Use
  Company Number: MX-TEVA-197820ISR

PATIENT
  Age: 33 Year
  Sex: Female
  Weight: 70.1 kg

DRUGS (3)
  1. CYCLOPHOSPHAMIDE [Suspect]
  2. DOXORUBICIN HCL [Suspect]
  3. PEGFILGRASTIM [Suspect]
     Indication: CHEMOTHERAPY
     Route: 058

REACTIONS (2)
  - DEHYDRATION [None]
  - DEPRESSION SUICIDAL [None]
